FAERS Safety Report 5948961-3 (Version None)
Quarter: 2008Q4

REPORT INFORMATION
  Report Type: 
  Country: None (occurrence: None)
  Receive Date: 20081111
  Receipt Date: 20081103
  Transmission Date: 20090506
  Serious: Yes (Life-Threatening)
  Sender: FDA-Public Use
  Company Number: DE-WYE-H06792808

PATIENT
  Age: 66 Year
  Sex: Male

DRUGS (6)
  1. CORDAREX [Suspect]
     Indication: VENTRICULAR TACHYCARDIA
     Dosage: GIVEN INTRAVENOUSLY AND ORALLY AT A DOSE OF 1100 MG
     Route: 048
  2. HYDROCHLOROTHIAZIDE [Concomitant]
     Indication: DIABETIC CARDIOMYOPATHY
     Dosage: IN COMBINATION WITH RAMIPRIL DOSE 5/25
  3. TOREM [Concomitant]
     Indication: DIABETIC CARDIOMYOPATHY
     Route: 048
  4. RAMIPRIL [Concomitant]
     Indication: DIABETIC CARDIOMYOPATHY
     Dosage: IN COMBINATION WITH HYDROCHLOROTHIAZIDE DOSE 5/25
  5. CORDAREX [Suspect]
     Dosage: GIVEN INTRAVENOUSLY AND ORALLY AT A DOSE OF 1100 MG
     Route: 042
  6. MARCUMAR [Concomitant]
     Indication: PERIPHERAL EMBOLISM
     Route: 048
     Dates: start: 19990101

REACTIONS (2)
  - HEPATIC FAILURE [None]
  - HEPATORENAL SYNDROME [None]
